FAERS Safety Report 16153404 (Version 1)
Quarter: 2019Q2

REPORT INFORMATION
  Report Type: Spontaneous
  Country: US (occurrence: US)
  Receive Date: 20190403
  Receipt Date: 20190403
  Transmission Date: 20190711
  Serious: No
  Sender: FDA-Public Use
  Company Number: US-GLAXOSMITHKLINE-US2019057030

PATIENT
  Age: 50 Year
  Sex: Male

DRUGS (1)
  1. ALLI [Suspect]
     Active Substance: ORLISTAT
     Indication: WEIGHT CONTROL
     Dosage: 2 UNK, TID
     Route: 048

REACTIONS (2)
  - Extra dose administered [Unknown]
  - Frequent bowel movements [Not Recovered/Not Resolved]
